FAERS Safety Report 16934143 (Version 1)
Quarter: 2019Q4

REPORT INFORMATION
  Report Type: Spontaneous
  Country: US (occurrence: US)
  Receive Date: 20191017
  Receipt Date: 20191017
  Transmission Date: 20200122
  Serious: Yes (Other)
  Sender: FDA-Public Use
  Company Number: None

PATIENT
  Age: 86 Year
  Sex: Male
  Weight: 91.35 kg

DRUGS (14)
  1. UBIQUINOL [Concomitant]
     Active Substance: UBIQUINOL
  2. MEMANTINE. [Concomitant]
     Active Substance: MEMANTINE
  3. SYNTHROID [Concomitant]
     Active Substance: LEVOTHYROXINE SODIUM
  4. CALCITRIOL. [Concomitant]
     Active Substance: CALCITRIOL
  5. MYRBETRIQ [Concomitant]
     Active Substance: MIRABEGRON
  6. JANTOVEN [Suspect]
     Active Substance: WARFARIN SODIUM
     Indication: ANTICOAGULANT THERAPY
     Route: 048
     Dates: start: 20190916
  7. ATORVASTATIN [Concomitant]
     Active Substance: ATORVASTATIN
  8. VITAMIN B12 [Concomitant]
     Active Substance: CYANOCOBALAMIN
  9. SERTRALINE [Concomitant]
     Active Substance: SERTRALINE HYDROCHLORIDE
  10. TORSEMIDE. [Concomitant]
     Active Substance: TORSEMIDE
  11. MULTIVITAMIN [Concomitant]
     Active Substance: VITAMINS
  12. CARBIDOPA/LEVODOPA [Concomitant]
     Active Substance: CARBIDOPA\LEVODOPA
  13. B1 VITAMIN [Concomitant]
  14. D3 VITAMIN [Concomitant]

REACTIONS (1)
  - International normalised ratio increased [None]

NARRATIVE: CASE EVENT DATE: 20191010
